FAERS Safety Report 24104495 (Version 1)
Quarter: 2024Q3

REPORT INFORMATION
  Report Type: Spontaneous
  Country: IT (occurrence: IT)
  Receive Date: 20240717
  Receipt Date: 20240717
  Transmission Date: 20241017
  Serious: Yes (Other)
  Sender: MYLAN
  Company Number: IT-JNJFOC-20240670117

PATIENT
  Age: 76 Year
  Sex: Male

DRUGS (2)
  1. ABIRATERONE [Suspect]
     Active Substance: ABIRATERONE
     Indication: Prostate cancer metastatic
     Dosage: 1000 MILLIGRAM
     Route: 048
  2. PREDNISONE [Suspect]
     Active Substance: PREDNISONE
     Indication: Prostate cancer metastatic
     Dosage: 5 MILLIGRAM
     Route: 065

REACTIONS (1)
  - Therapy non-responder [Unknown]
